FAERS Safety Report 14931681 (Version 4)
Quarter: 2020Q2

REPORT INFORMATION
  Report Type: Report from Study
  Country: FR (occurrence: FR)
  Receive Date: 20180524
  Receipt Date: 20200429
  Transmission Date: 20200713
  Serious: Yes (Death, Other)
  Sender: FDA-Public Use
  Company Number: FR-JAZZ-2018-FR-007977

PATIENT

DRUGS (3)
  1. DEFITELIO [Suspect]
     Active Substance: DEFIBROTIDE SODIUM
     Indication: VENOOCCLUSIVE LIVER DISEASE
     Dosage: 26.22 MG/KG, QD
     Route: 042
     Dates: start: 20171226
  2. CHOLURSO [Concomitant]
     Active Substance: URSODIOL
     Indication: VENOOCCLUSIVE LIVER DISEASE
  3. DEFITELIO [Suspect]
     Active Substance: DEFIBROTIDE SODIUM
     Dosage: 24.4 MG/KG, QD
     Route: 042
     Dates: end: 20180105

REACTIONS (4)
  - Mucosal inflammation [Unknown]
  - Viral haemorrhagic cystitis [Unknown]
  - Off label use [Unknown]
  - Death [Fatal]

NARRATIVE: CASE EVENT DATE: 20171218
